FAERS Safety Report 10577700 (Version 1)
Quarter: 2014Q4

REPORT INFORMATION
  Report Type: Spontaneous
  Country: AU (occurrence: AU)
  Receive Date: 20141111
  Receipt Date: 20141111
  Transmission Date: 20150529
  Serious: Yes (Other)
  Sender: FDA-Public Use
  Company Number: AU-SYMPLMED PHARMACEUTICALS-2014SYM00173

PATIENT
  Sex: Female

DRUGS (1)
  1. ACEON [Suspect]
     Active Substance: PERINDOPRIL ERBUMINE
     Indication: PROPHYLAXIS
     Dosage: 10 MG, QD
     Dates: start: 20090122, end: 20090507

REACTIONS (3)
  - Chronic obstructive pulmonary disease [Unknown]
  - Chronic obstructive pulmonary disease [None]
  - Bronchiectasis [Unknown]

NARRATIVE: CASE EVENT DATE: 2009
